FAERS Safety Report 9772924 (Version 2)
Quarter: 2014Q3

REPORT INFORMATION
  Report Type: Spontaneous
  Country: US (occurrence: US)
  Receive Date: 20131219
  Receipt Date: 20140821
  Transmission Date: 20150326
  Serious: Yes (Hospitalization, Other)
  Sender: FDA-Public Use
  Company Number: US-009507513-1312USA007747

PATIENT
  Sex: Female
  Weight: 60 kg

DRUGS (4)
  1. CIPRO (CIPROFLOXACIN HYDROCHLORIDE) [Concomitant]
     Dosage: 500 MG, BID
     Route: 048
  2. LIALDA [Concomitant]
     Active Substance: MESALAMINE
     Dosage: 3.6 G, QD
     Route: 048
  3. PREDNISONE. [Concomitant]
     Active Substance: PREDNISONE
     Indication: COLITIS ULCERATIVE
     Dosage: 3 MG, BID
     Route: 048
  4. NUVARING [Suspect]
     Active Substance: ETHINYL ESTRADIOL\ETONOGESTREL
     Indication: CONTRACEPTION
     Dosage: UNK
     Route: 067
     Dates: start: 20130406, end: 20130409

REACTIONS (2)
  - Extravasation [Unknown]
  - Pulmonary embolism [Unknown]

NARRATIVE: CASE EVENT DATE: 20130406
